FAERS Safety Report 5615799-6 (Version None)
Quarter: 2008Q1

REPORT INFORMATION
  Report Type: 
  Country: None (occurrence: None)
  Receive Date: 20080206
  Receipt Date: 20080131
  Transmission Date: 20080703
  Serious: Yes (Other)
  Sender: FDA-Public Use
  Company Number: US-ALLERGAN-0801263US

PATIENT
  Sex: Female

DRUGS (1)
  1. BOTOX [Suspect]
     Indication: TREMOR
     Dosage: UNK, SINGLE
     Route: 030
     Dates: start: 20071213, end: 20071213

REACTIONS (5)
  - BEDRIDDEN [None]
  - COUGH [None]
  - DYSPHONIA [None]
  - MUSCULAR WEAKNESS [None]
  - UPPER RESPIRATORY TRACT INFECTION [None]
